FAERS Safety Report 21682280 (Version 1)
Quarter: 2022Q4

REPORT INFORMATION
  Report Type: Spontaneous
  Country: US (occurrence: US)
  Receive Date: 20221205
  Receipt Date: 20221205
  Transmission Date: 20230112
  Serious: No
  Sender: FDA-Public Use
  Company Number: US-BAYER-2022P022695

PATIENT
  Age: 24 Year
  Sex: Female

DRUGS (2)
  1. KYLEENA [Suspect]
     Active Substance: LEVONORGESTREL
     Indication: Endometriosis
     Dosage: 17.5?G/DAY
     Route: 015
     Dates: start: 201906
  2. KYLEENA [Suspect]
     Active Substance: LEVONORGESTREL
     Indication: Contraception

REACTIONS (4)
  - Hot flush [None]
  - Weight increased [None]
  - Mood swings [None]
  - Acne [None]
